FAERS Safety Report 7057486-6 (Version None)
Quarter: 2010Q4

REPORT INFORMATION
  Report Type: 
  Country: None (occurrence: None)
  Receive Date: 20101022
  Receipt Date: 20101012
  Transmission Date: 20110411
  Serious: Yes (Other)
  Sender: FDA-Public Use
  Company Number: PHHY2010US68875

PATIENT
  Sex: Male

DRUGS (1)
  1. NEORAL [Suspect]
     Indication: LIVER TRANSPLANT
     Dosage: 300 MG TWICE DAILY
     Route: 048
     Dates: start: 20090910

REACTIONS (2)
  - BILE DUCT OBSTRUCTION [None]
  - BILIARY TRACT OPERATION [None]
